FAERS Safety Report 15931434 (Version 3)
Quarter: 2019Q1

REPORT INFORMATION
  Report Type: Spontaneous
  Country: ES (occurrence: ES)
  Receive Date: 20190207
  Receipt Date: 20190218
  Transmission Date: 20190417
  Serious: Yes (Other)
  Sender: FDA-Public Use
  Company Number: ES-009507513-1901ESP011249

PATIENT
  Age: 17 Year
  Sex: Female

DRUGS (1)
  1. IMPLANON [Suspect]
     Active Substance: ETONOGESTREL
     Indication: CONTRACEPTION
     Dosage: 1 IMPLANT, 3YEARS
     Route: 058
     Dates: start: 201707

REACTIONS (5)
  - Device deployment issue [Not Recovered/Not Resolved]
  - Complication associated with device [Recovered/Resolved]
  - Product use issue [Unknown]
  - Implant site haemorrhage [Unknown]
  - Device embolisation [Not Recovered/Not Resolved]

NARRATIVE: CASE EVENT DATE: 201707
